FAERS Safety Report 7935563-2 (Version None)
Quarter: 2011Q4

REPORT INFORMATION
  Report Type: 
  Country: None (occurrence: None)
  Receive Date: 20111123
  Receipt Date: 20111115
  Transmission Date: 20120403
  Serious: No
  Sender: FDA-Public Use
  Company Number: US-BIOGENIDEC-2011BI043940

PATIENT
  Age: 38 Year
  Sex: Female

DRUGS (5)
  1. AVONEX [Suspect]
     Route: 030
     Dates: start: 19960601, end: 19960901
  2. IBUPROFEN [Concomitant]
     Indication: PREMEDICATION
     Dates: start: 20060501
  3. ACETAMINOPHEN [Concomitant]
     Indication: PROPHYLAXIS
     Dates: start: 20060501
  4. FLU SHOT (NOS) [Concomitant]
     Indication: ANTIVIRAL PROPHYLAXIS
     Dates: start: 20111114, end: 20111114
  5. AVONEX [Suspect]
     Indication: MULTIPLE SCLEROSIS
     Route: 030
     Dates: start: 20060501

REACTIONS (3)
  - INFLUENZA LIKE ILLNESS [None]
  - FEELING ABNORMAL [None]
  - PAIN IN EXTREMITY [None]
